FAERS Safety Report 10063281 (Version 2)
Quarter: 2014Q2

REPORT INFORMATION
  Report Type: Report from Study
  Country: DE (occurrence: DE)
  Receive Date: 20140407
  Receipt Date: 20140521
  Transmission Date: 20141212
  Serious: Yes (Hospitalization)
  Sender: FDA-Public Use
  Company Number: DE-INCYTE CORPORATION-2014IN000917

PATIENT
  Sex: Female
  Weight: 45.5 kg

DRUGS (10)
  1. INCB018424 [Suspect]
     Indication: MYELOFIBROSIS
     Dosage: 2 DF, PER DAY
     Route: 048
     Dates: start: 20131024, end: 20131121
  2. INCB018424 [Suspect]
     Dosage: 4 DF, PER DAY
     Route: 048
     Dates: start: 20131122
  3. CALCIUM + VITAMIN D3 [Concomitant]
     Dosage: UNK
  4. BISOPROLOL [Concomitant]
     Dosage: UNK
  5. ALLOPURINOL [Concomitant]
     Dosage: UNK
  6. FUROSEMIDE [Concomitant]
     Dosage: UNK
  7. RAMIPRIL [Concomitant]
     Dosage: UNK
  8. L-THYROXIN [Concomitant]
     Dosage: UNK
  9. DIGITOXIN [Concomitant]
     Dosage: UNK
  10. EXJADE [Concomitant]
     Dosage: UNK
     Dates: start: 20140203, end: 20140216

REACTIONS (1)
  - Haemarthrosis [Recovered/Resolved]
